FAERS Safety Report 5493316-1 (Version None)
Quarter: 2007Q4

REPORT INFORMATION
  Report Type: 
  Country: None (occurrence: None)
  Receive Date: 20071023
  Receipt Date: 20070108
  Transmission Date: 20080405
  Serious: No
  Sender: FDA-Public Use
  Company Number: US-BRISTOL-MYERS SQUIBB COMPANY-13635131

PATIENT
  Age: 62 Year
  Sex: Female
  Weight: 58 kg

DRUGS (5)
  1. KENALOG-40 [Suspect]
     Indication: ASTHMA
     Route: 042
  2. MEDROL [Concomitant]
  3. SPIRIVA [Concomitant]
  4. VENTOLIN [Concomitant]
  5. ADVAIR DISKUS 100/50 [Concomitant]

REACTIONS (1)
  - INCORRECT ROUTE OF DRUG ADMINISTRATION [None]
